FAERS Safety Report 11175393 (Version 1)
Quarter: 2015Q2

REPORT INFORMATION
  Report Type: Spontaneous
  Country: US (occurrence: US)
  Receive Date: 20150609
  Receipt Date: 20150609
  Transmission Date: 20150821
  Serious: Yes (Hospitalization)
  Sender: FDA-Public Use
  Company Number: US-BAYER-2015-316288

PATIENT
  Age: 57 Year
  Sex: Female

DRUGS (4)
  1. INTERFERON BETA - 1B [Suspect]
     Active Substance: INTERFERON BETA-1B
     Indication: MULTIPLE SCLEROSIS
     Dosage: 0.5 MG, UNK
  2. INTERFERON BETA - 1B [Suspect]
     Active Substance: INTERFERON BETA-1B
     Indication: MULTIPLE SCLEROSIS
     Dosage: 1 MG, UNK
  3. INTERFERON BETA - 1B [Suspect]
     Active Substance: INTERFERON BETA-1B
     Indication: MULTIPLE SCLEROSIS
     Dosage: 0.75 MG, UNK
  4. LITHIUM. [Concomitant]
     Active Substance: LITHIUM

REACTIONS (2)
  - Suicidal ideation [Recovering/Resolving]
  - Depression [None]
